FAERS Safety Report 8257996-X (Version None)
Quarter: 2012Q1

REPORT INFORMATION
  Report Type: 
  Country: None (occurrence: None)
  Receive Date: 20111211
  Receipt Date: 20110824
  Transmission Date: 20120608
  Serious: No
  Sender: FDA-Public Use
  Company Number: 201108036

PATIENT
  Age: 66 Year
  Sex: Male

DRUGS (2)
  1. XIAFLEX (CLOSTRIDIAL COLLAGENASE) [Suspect]
     Indication: DUPUYTREN'S CONTRACTURE
     Dosage: 0.58 MG, 1 IN 1 D, INTRALESIONAL;220-440 MG OCCASIONAL PAIN, ORAL
     Route: 026
     Dates: start: 20110810, end: 20110811
  2. NAPROXEN (ALEVE) [Concomitant]

REACTIONS (1)
  - DRUG INEFFECTIVE [None]
